FAERS Safety Report 7814227-X (Version None)
Quarter: 2011Q4

REPORT INFORMATION
  Report Type: 
  Country: None (occurrence: None)
  Receive Date: 20111014
  Receipt Date: 20111009
  Transmission Date: 20120403
  Serious: Yes (Other)
  Sender: FDA-Public Use
  Company Number: AU-JNJFOC-20111004576

PATIENT
  Sex: Male

DRUGS (5)
  1. STELARA [Suspect]
     Indication: PSORIASIS
     Route: 058
     Dates: start: 20110320
  2. CARDIAC MEDICATION [Concomitant]
  3. STELARA [Suspect]
     Route: 058
     Dates: start: 20110716
  4. STELARA [Suspect]
     Route: 058
     Dates: start: 20111009
  5. STELARA [Suspect]
     Route: 058
     Dates: start: 20110420

REACTIONS (1)
  - DEMENTIA [None]
